FAERS Safety Report 10263589 (Version 1)
Quarter: 2014Q2

REPORT INFORMATION
  Report Type: Report from Study
  Country: CA (occurrence: CA)
  Receive Date: 20140626
  Receipt Date: 20140626
  Transmission Date: 20141212
  Serious: Yes (Other)
  Sender: FDA-Public Use
  Company Number: CA-ABBVIE-14P-028-1250122-00

PATIENT
  Sex: Female

DRUGS (1)
  1. HUMIRA [Suspect]
     Indication: PSORIASIS
     Route: 058
     Dates: start: 20120716, end: 20140426

REACTIONS (4)
  - Malaise [Recovering/Resolving]
  - Cholelithiasis obstructive [Unknown]
  - Gallbladder disorder [Unknown]
  - Back pain [Unknown]
